FAERS Safety Report 4790716-X (Version None)
Quarter: 2005Q3

REPORT INFORMATION
  Report Type: 
  Country: None (occurrence: None)
  Receive Date: 20050914
  Receipt Date: 20041222
  Transmission Date: 20060218
  Serious: Yes (Other)
  Sender: FDA-Public Use
  Company Number: 163-20785-04120586

PATIENT
  Age: 43 Year
  Sex: Female

DRUGS (1)
  1. THALOMID [Suspect]
     Indication: SARCOIDOSIS
     Dosage: 100-300MG, DAILY, ORAL
     Route: 048
     Dates: start: 20020128, end: 20041221

REACTIONS (4)
  - DEEP VEIN THROMBOSIS [None]
  - DIZZINESS [None]
  - MUSCULAR WEAKNESS [None]
  - NEUROPATHY [None]
